FAERS Safety Report 10386467 (Version 2)
Quarter: 2014Q3

REPORT INFORMATION
  Report Type: Spontaneous
  Country: FR (occurrence: FR)
  Receive Date: 20140815
  Receipt Date: 20140820
  Transmission Date: 20150326
  Serious: Yes (Life-Threatening)
  Sender: FDA-Public Use
  Company Number: FR-AMGEN-FRASP2014060838

PATIENT
  Age: 85 Year
  Sex: Male

DRUGS (26)
  1. CLAVULANIC ACID [Concomitant]
     Active Substance: CLAVULANIC ACID
     Dosage: 1 G, UNK
     Route: 042
     Dates: start: 20140614, end: 20140621
  2. LANTUS [Concomitant]
     Active Substance: INSULIN GLARGINE
     Dosage: 20 IU, ( 20 UI,1 IN 1 DAY)UNK
     Route: 058
     Dates: start: 20140615
  3. ZYVOXID [Suspect]
     Active Substance: LINEZOLID
     Indication: LUNG DISORDER
     Dosage: 600 MG,( 2 DF.2 IN 1 DAY) UNK
     Route: 048
     Dates: start: 20140620
  4. IPRATROPIUM ARROW [Concomitant]
     Active Substance: IPRATROPIUM
     Dosage: 0.5 ML/2 ML UNK
     Dates: start: 20140615
  5. PREVISCAN                          /00261401/ [Concomitant]
     Active Substance: PENTOXIFYLLINE
     Dosage: 20 MG, 1 DF ( 1 DF, 1IN 1 DAY)UNK
     Route: 048
  6. ARANESP [Suspect]
     Active Substance: DARBEPOETIN ALFA
     Indication: PRODUCT USED FOR UNKNOWN INDICATION
     Dosage: 300 MUG, QWK
     Route: 058
     Dates: start: 20140613
  7. SALBUTAMOL [Concomitant]
     Active Substance: ALBUTEROL
     Dosage: UNK
     Route: 055
     Dates: start: 20140615
  8. ATARAX [Suspect]
     Active Substance: HYDROXYZINE\HYDROXYZINE HYDROCHLORIDE
     Indication: PRODUCT USED FOR UNKNOWN INDICATION
     Dosage: 25 MG, UNK
     Route: 048
     Dates: start: 20140621
  9. FLAGYL [Suspect]
     Active Substance: METRONIDAZOLE\METRONIDAZOLE HYDROCHLORIDE
     Indication: PRODUCT USED FOR UNKNOWN INDICATION
     Dosage: 250 MG, 6 DF ((2 DF, 3 IN 1 DAY)UNK
     Route: 048
     Dates: start: 20140613
  10. SERESTA [Suspect]
     Active Substance: OXAZEPAM
     Indication: PRODUCT USED FOR UNKNOWN INDICATION
     Dosage: 10 MG,(1 DF, 1IN 1 DAY) UNK
     Route: 048
     Dates: start: 20140620
  11. TARGOCID [Concomitant]
     Active Substance: TEICOPLANIN
     Indication: LUNG DISORDER
     Dosage: 400 MG, UNK
     Route: 042
     Dates: start: 20140618, end: 20140619
  12. CETIRIZINE [Concomitant]
     Active Substance: CETIRIZINE HYDROCHLORIDE
     Dosage: 10 MG,(1 DF, 1 IN1 DAY)UNK
     Route: 048
     Dates: start: 20140620
  13. AMOXICILLIN. [Concomitant]
     Active Substance: AMOXICILLIN
     Dosage: 1 G, UNK
     Route: 042
     Dates: start: 20140614, end: 20140621
  14. VALACYCLOVIR [Suspect]
     Active Substance: VALACYCLOVIR HYDROCHLORIDE
     Indication: PRODUCT USED FOR UNKNOWN INDICATION
     Dosage: 500 MG,( 1 DF, 1 IN 1 DAY)UNK
     Route: 048
     Dates: start: 20140613
  15. CALCIDOSE VITAMINE D [Concomitant]
     Active Substance: CALCIUM\CHOLECALCIFEROL
     Dosage: 2 DF, QD
     Route: 048
     Dates: start: 20140613
  16. MICROPAKINE LP [Concomitant]
     Dosage: 500 MG, 2 DF (1 DF,2 IN 1 DAY)UNK
     Route: 048
     Dates: start: 20140621
  17. RAMIPRIL MYLAN [Concomitant]
     Dosage: 2.5 MG, 1 DF (1 DF,1 IN 1 DAY)UNK
     Route: 048
     Dates: start: 20140613
  18. KARDEGIC [Concomitant]
     Active Substance: ASPIRIN LYSINE
     Dosage: 75 MG,(1 DF,1 IN 1 DAY) UNK
     Route: 048
  19. OFLOXACINE [Concomitant]
     Active Substance: OFLOXACIN
     Dosage: 200 MG/40 ML,SOLUTION FOR INFUSION UNK
     Route: 042
     Dates: start: 20140614, end: 20140621
  20. ASPEGIC [Concomitant]
     Active Substance: ASPIRIN DL-LYSINE
     Dosage: 500 MG, UNK
     Route: 042
     Dates: start: 20140614
  21. LEVEMIR [Concomitant]
     Active Substance: INSULIN DETEMIR
     Dosage: 6 IU, (1 IN 1 DAY)UNK
     Route: 058
  22. AMLOR [Concomitant]
     Active Substance: AMLODIPINE BESYLATE
     Dosage: 10 MG, (1 DF,1 IN 1 DAY)UNK
     Route: 048
  23. LANSOPRAZOLE MYLAN [Concomitant]
     Dosage: 15 MG,1 DF (1 DF, 1 IN 1 DAY) UNK
     Dates: start: 20140613
  24. CALCIPARINE [Concomitant]
     Active Substance: HEPARIN CALCIUM
     Dosage: 7500 IU/0.3 ML, (0.2 ML, 1 IN 1 DAY)UNK
     Route: 058
     Dates: start: 20140615
  25. EUPANTOL [Concomitant]
     Active Substance: PANTOPRAZOLE SODIUM
     Dosage: 40 MG, (1 DF, 1 IN 1 DAY)UNK
     Route: 048
  26. STILNOX [Concomitant]
     Active Substance: ZOLPIDEM TARTRATE
     Dosage: 10 MG,(0.5 DF,1 IN 1DAY) UNK
     Route: 048

REACTIONS (7)
  - C-reactive protein increased [None]
  - Clonus [None]
  - Epilepsy [Recovered/Resolved with Sequelae]
  - Hemiplegia [None]
  - Visual impairment [None]
  - Drug hypersensitivity [None]
  - Malaise [None]

NARRATIVE: CASE EVENT DATE: 20140622
